FAERS Safety Report 18733584 (Version 1)
Quarter: 2021Q1

REPORT INFORMATION
  Report Type: Report from Study
  Country: GB (occurrence: GB)
  Receive Date: 20210113
  Receipt Date: 20210113
  Transmission Date: 20210419
  Serious: Yes (Hospitalization, Other)
  Sender: FDA-Public Use
  Company Number: GB-TEVA-2021-GB-1868247

PATIENT
  Age: 55 Year
  Sex: Female

DRUGS (1)
  1. AJOVY [Suspect]
     Active Substance: FREMANEZUMAB-VFRM
     Route: 065

REACTIONS (1)
  - COVID-19 [Recovering/Resolving]

NARRATIVE: CASE EVENT DATE: 20201229
